FAERS Safety Report 20703242 (Version 3)
Quarter: 2023Q4

REPORT INFORMATION
  Report Type: Spontaneous
  Country: US (occurrence: US)
  Receive Date: 20220413
  Receipt Date: 20231001
  Transmission Date: 20240110
  Serious: No
  Sender: FDA-Public Use
  Company Number: US-ARGENX-2022-ARGX-US000377

PATIENT

DRUGS (1)
  1. VYVGART [Suspect]
     Active Substance: EFGARTIGIMOD ALFA-FCAB
     Indication: Myasthenia gravis
     Dosage: 125 MG, 1/WEEK
     Route: 042
     Dates: start: 20220224

REACTIONS (12)
  - Drug ineffective [Unknown]
  - Eye irritation [Unknown]
  - Arthralgia [Unknown]
  - Muscle fatigue [Unknown]
  - Myasthenia gravis [Unknown]
  - Stress [Unknown]
  - Pain [Unknown]
  - Product availability issue [Unknown]
  - Symptom recurrence [Unknown]
  - Quality of life decreased [Unknown]
  - Temperature intolerance [Unknown]
  - Fatigue [Unknown]

NARRATIVE: CASE EVENT DATE: 20220304
